FAERS Safety Report 5953907-8 (Version None)
Quarter: 2008Q4

REPORT INFORMATION
  Report Type: 
  Country: None (occurrence: None)
  Receive Date: 20081114
  Receipt Date: 20081103
  Transmission Date: 20090506
  Serious: Yes (Other)
  Sender: FDA-Public Use
  Company Number: GB-ABBOTT-08P-167-0478940-00

PATIENT
  Sex: Male
  Weight: 98.9 kg

DRUGS (6)
  1. HUMIRA [Suspect]
     Indication: PSORIATIC ARTHROPATHY
     Route: 058
     Dates: start: 20080707, end: 20080929
  2. METHOTREXATE [Concomitant]
     Indication: PSORIATIC ARTHROPATHY
     Route: 048
  3. FOLIC ACID [Concomitant]
     Indication: PSORIATIC ARTHROPATHY
     Route: 048
  4. SERTRALINE HYDROCHLORIDE [Concomitant]
     Indication: PSORIATIC ARTHROPATHY
  5. DICLOFENAC SODIUM [Concomitant]
     Indication: PSORIATIC ARTHROPATHY
  6. ACETAMINOPHEN W/ CODEINE [Concomitant]
     Indication: PSORIATIC ARTHROPATHY

REACTIONS (3)
  - NAIL PSORIASIS [None]
  - PSORIASIS [None]
  - RASH [None]
